FAERS Safety Report 6020574-7 (Version None)
Quarter: 2008Q4

REPORT INFORMATION
  Report Type: 
  Country: None (occurrence: None)
  Receive Date: 20081227
  Receipt Date: 20081222
  Transmission Date: 20090506
  Serious: Yes (Hospitalization, Other)
  Sender: FDA-Public Use
  Company Number: ES-JNJFOC-20071006133

PATIENT
  Sex: Female
  Weight: 56 kg

DRUGS (10)
  1. TMC125 [Suspect]
     Route: 048
  2. TMC125 [Suspect]
     Indication: HIV INFECTION
     Route: 048
  3. TMC114 [Suspect]
     Route: 048
  4. TMC114 [Suspect]
     Indication: HIV INFECTION
     Route: 048
  5. RITONAVIR [Suspect]
     Indication: HIV INFECTION
     Route: 048
  6. TDF [Concomitant]
     Indication: HIV INFECTION
     Route: 048
  7. RALTEGRAVIR [Concomitant]
     Indication: HIV INFECTION
     Route: 048
  8. EMTRICITABINE [Concomitant]
     Indication: HIV INFECTION
     Route: 048
  9. OMEPRAZOLE [Concomitant]
     Indication: GASTROINTESTINAL DISORDER THERAPY
     Route: 048
  10. COTRIM [Concomitant]
     Route: 048

REACTIONS (9)
  - ANXIETY [None]
  - CONFUSIONAL STATE [None]
  - DIARRHOEA [None]
  - MENINGITIS CRYPTOCOCCAL [None]
  - NAUSEA [None]
  - SUICIDAL IDEATION [None]
  - TACHYCARDIA [None]
  - VERTIGO [None]
  - VOMITING [None]
